FAERS Safety Report 6283760-7 (Version None)
Quarter: 2009Q3

REPORT INFORMATION
  Report Type: 
  Country: None (occurrence: None)
  Receive Date: 20090724
  Receipt Date: 20090602
  Transmission Date: 20100115
  Serious: Yes (Other)
  Sender: FDA-Public Use
  Company Number: US-GENENTECH-284864

PATIENT
  Age: 84 Year
  Sex: Male

DRUGS (1)
  1. LUCENTIS [Suspect]
     Indication: CHOROIDAL NEOVASCULARISATION
     Dosage: UNK
     Route: 031

REACTIONS (5)
  - MACULAR OEDEMA [None]
  - POLYPOIDAL CHOROIDAL VASCULOPATHY [None]
  - RETINAL EXUDATES [None]
  - RETINAL OEDEMA [None]
  - VISUAL ACUITY REDUCED [None]
